FAERS Safety Report 25299014 (Version 5)
Quarter: 2025Q4

REPORT INFORMATION
  Report Type: Report from Study
  Country: CA (occurrence: CA)
  Receive Date: 20250512
  Receipt Date: 20251226
  Transmission Date: 20260117
  Serious: Yes (Other)
  Sender: CELLTRION
  Company Number: CA-CELLTRION INC.-2025CA012037

PATIENT

DRUGS (3)
  1. USTEKINUMAB [Suspect]
     Active Substance: USTEKINUMAB
     Indication: Psoriasis
     Dosage: 45 MG EVERY 8 WEEKS
     Route: 058
     Dates: start: 20250306
  2. USTEKINUMAB [Suspect]
     Active Substance: USTEKINUMAB
     Dosage: ONE SYRINGE (45 MG) EVERY 4 WEEKS
     Route: 058
  3. TAMOXIFEN [Concomitant]
     Active Substance: TAMOXIFEN

REACTIONS (8)
  - Palpitations [Unknown]
  - Irritability [Unknown]
  - Insomnia [Unknown]
  - Psoriasis [Unknown]
  - Headache [Unknown]
  - Intentional product use issue [Unknown]
  - Intentional product use issue [Unknown]
  - Therapy interrupted [Recovered/Resolved]

NARRATIVE: CASE EVENT DATE: 20250503
